FAERS Safety Report 7503738-2 (Version None)
Quarter: 2011Q2

REPORT INFORMATION
  Report Type: 
  Country: None (occurrence: None)
  Receive Date: 20110525
  Receipt Date: 20110505
  Transmission Date: 20111010
  Serious: Yes (Hospitalization)
  Sender: FDA-Public Use
  Company Number: PHHY2011SK43212

PATIENT
  Sex: Male

DRUGS (2)
  1. CIPROFLOXACIN [Suspect]
     Indication: TRACHEITIS
     Dosage: 500 MG, BID
     Route: 048
     Dates: start: 20110330, end: 20110410
  2. ATORIS [Concomitant]
     Dosage: UNK UKN, UNK

REACTIONS (2)
  - MYALGIA [None]
  - MYOPATHY [None]
